FAERS Safety Report 6820942-7 (Version None)
Quarter: 2010Q3

REPORT INFORMATION
  Report Type: 
  Country: None (occurrence: None)
  Receive Date: 20100707
  Receipt Date: 20080609
  Transmission Date: 20110219
  Serious: Yes (Death)
  Sender: FDA-Public Use
  Company Number: US-PFIZER INC-2007038579

PATIENT
  Sex: Male
  Weight: 89.4 kg

DRUGS (2)
  1. ZOLOFT [Suspect]
     Indication: DEPRESSION
     Route: 048
     Dates: start: 20041201, end: 20050323
  2. EFFEXOR [Suspect]
     Dates: start: 20050323

REACTIONS (1)
  - COMPLETED SUICIDE [None]
